FAERS Safety Report 9357240 (Version 1)
Quarter: 2013Q2

REPORT INFORMATION
  Report Type: Spontaneous
  Country: US (occurrence: US)
  Receive Date: 20130620
  Receipt Date: 20130620
  Transmission Date: 20140414
  Serious: No
  Sender: FDA-Public Use
  Company Number: US-JNJFOC-20130603556

PATIENT
  Age: 53 Year
  Sex: Female
  Weight: 71.67 kg

DRUGS (6)
  1. DURAGESIC [Suspect]
     Indication: LUNG NEOPLASM MALIGNANT
     Route: 062
     Dates: start: 20130508
  2. LORTAB [Concomitant]
     Indication: BREAKTHROUGH PAIN
     Dosage: 10/500MG/TABLET/10/500MG??EVERY 4-6 HRS
     Route: 048
     Dates: start: 201303
  3. XANAX [Concomitant]
     Indication: ANXIETY
     Dosage: 0.25MG/TABLET/0.25MG/EVERY??EIGHT HOURS/
     Route: 048
     Dates: start: 201305
  4. MEGACE ES [Concomitant]
     Indication: DECREASED APPETITE
     Dosage: 625MG/TABLET/ONCE DAILY
     Route: 048
     Dates: start: 201305
  5. GABAPENTIN [Concomitant]
     Indication: HYPOAESTHESIA
     Dosage: 100MG/TABLET/ONCE DAILY
     Route: 048
     Dates: start: 201305
  6. ZOPHREN [Concomitant]
     Indication: NAUSEA
     Dosage: 8MG/TABLET/8MG/ONE EVERY 8??HOURS PRN/
     Route: 048
     Dates: start: 201305

REACTIONS (2)
  - Drug dose omission [Recovered/Resolved]
  - Product quality issue [Unknown]
